FAERS Safety Report 10527926 (Version 1)
Quarter: 2014Q4

REPORT INFORMATION
  Report Type: Spontaneous
  Country: IL (occurrence: None)
  Receive Date: 20141017
  Receipt Date: 20141017
  Transmission Date: 20150528
  Serious: Yes (Other)
  Sender: FDA-Public Use
  Company Number: 2014SCAL000160

PATIENT
  Age: 46 Year
  Sex: Female

DRUGS (1)
  1. LITHIUM CARBONATE (LITHIUM CARBONATE) UNKNOWN [Suspect]
     Active Substance: LITHIUM CARBONATE
     Indication: BIPOLAR DISORDER

REACTIONS (2)
  - Nerve block [None]
  - Drug level below therapeutic [None]
